FAERS Safety Report 6303137-5 (Version None)
Quarter: 2009Q3

REPORT INFORMATION
  Report Type: 
  Country: None (occurrence: None)
  Receive Date: 20090810
  Receipt Date: 20090803
  Transmission Date: 20100115
  Serious: No
  Sender: FDA-Public Use
  Company Number: US-B.I. PHARMACEUTICALS,INC./RIDGEFIELD-2009-BP-09236BP

PATIENT
  Sex: Female
  Weight: 127 kg

DRUGS (3)
  1. MOBIC [Suspect]
     Indication: OSTEONECROSIS
     Dosage: 15 MG
     Route: 048
     Dates: start: 20090501
  2. LIPITOR [Concomitant]
     Indication: BLOOD CHOLESTEROL INCREASED
     Route: 048
  3. SYNTHROID [Concomitant]
     Indication: HYPOTHYROIDISM
     Route: 048

REACTIONS (1)
  - THERAPEUTIC REACTION TIME DECREASED [None]
